FAERS Safety Report 13177130 (Version 1)
Quarter: 2017Q1

REPORT INFORMATION
  Report Type: Report from Study
  Country: US (occurrence: US)
  Receive Date: 20170201
  Receipt Date: 20170201
  Transmission Date: 20170428
  Serious: No
  Sender: FDA-Public Use
  Company Number: US-EXELIXIS-CABO-16007140

PATIENT
  Age: 69 Year
  Sex: Male

DRUGS (13)
  1. CABOMETYX [Suspect]
     Active Substance: CABOZANTINIB S-MALATE
     Indication: RENAL CANCER
     Dosage: 60 MG, QD
     Route: 048
     Dates: start: 20160827, end: 2016
  2. CABOMETYX [Suspect]
     Active Substance: CABOZANTINIB S-MALATE
     Dosage: 40 MG, QD
     Route: 048
     Dates: start: 2016, end: 2016
  3. LEVOTHYROXINE. [Concomitant]
     Active Substance: LEVOTHYROXINE
  4. AMBIEN [Concomitant]
     Active Substance: ZOLPIDEM TARTRATE
  5. DILTIAZEM. [Concomitant]
     Active Substance: DILTIAZEM
  6. SYNTHROID [Concomitant]
     Active Substance: LEVOTHYROXINE SODIUM
  7. ADVAIR HFA [Concomitant]
     Active Substance: FLUTICASONE PROPIONATE\SALMETEROL XINAFOATE
  8. LOSARTAN. [Concomitant]
     Active Substance: LOSARTAN
  9. BYSTOLIC [Concomitant]
     Active Substance: NEBIVOLOL HYDROCHLORIDE
  10. LORAZEPAM. [Concomitant]
     Active Substance: LORAZEPAM
  11. ULORIC [Concomitant]
     Active Substance: FEBUXOSTAT
  12. BENICAR [Concomitant]
     Active Substance: OLMESARTAN MEDOXOMIL
  13. BENZONATATE. [Concomitant]
     Active Substance: BENZONATATE

REACTIONS (2)
  - Blister [Recovered/Resolved]
  - Drug ineffective [Unknown]

NARRATIVE: CASE EVENT DATE: 20160725
